FAERS Safety Report 5168410-5 (Version None)
Quarter: 2006Q4

REPORT INFORMATION
  Report Type: 
  Country: None (occurrence: None)
  Receive Date: 20061201
  Receipt Date: 20060727
  Transmission Date: 20070319
  Serious: No
  Sender: FDA-Public Use
  Company Number: 2006088993

PATIENT
  Age: 45 Year
  Sex: Female
  Weight: 52 kg

DRUGS (9)
  1. SILDENAFIL CITRATE [Suspect]
     Indication: PULMONARY HYPERTENSION
     Dosage: 37.5 MG (12.5 MG, 3 IN 1 D), ORAL
     Route: 048
     Dates: start: 20040422
  2. TRACLEER [Concomitant]
  3. DILTIAZEM HYDROCHLORIDE [Concomitant]
  4. LASIX [Concomitant]
  5. ALDACTONE [Concomitant]
  6. URSO (URSODEOXYCHOLIC ACID) [Concomitant]
  7. PREDNISOLONE [Concomitant]
  8. SELBEX (TEPRENONE) [Concomitant]
  9. NIZATIDINE [Concomitant]

REACTIONS (4)
  - HEPATIC FUNCTION ABNORMAL [None]
  - OFF LABEL USE [None]
  - PLATELET COUNT DECREASED [None]
  - RIGHT VENTRICULAR FAILURE [None]
